FAERS Safety Report 26176293 (Version 1)
Quarter: 2025Q4

REPORT INFORMATION
  Report Type: Spontaneous
  Country: GB (occurrence: GB)
  Receive Date: 20251218
  Receipt Date: 20251218
  Transmission Date: 20260117
  Serious: Yes (Hospitalization, Other)
  Sender: GALPHARM INTERNATIONAL
  Company Number: GB-MLMSERVICE-20240201-4812889-1

PATIENT
  Age: 69 Year
  Sex: Female

DRUGS (1)
  1. DICLOFENAC [Suspect]
     Active Substance: DICLOFENAC
     Indication: Back pain
     Dosage: UNKNOWN, FOR SEVERAL YEARS
     Route: 061

REACTIONS (2)
  - Ileal ulcer [Unknown]
  - Intestinal diaphragm disease [Recovering/Resolving]
